FAERS Safety Report 11346150 (Version 1)
Quarter: 2015Q3

REPORT INFORMATION
  Report Type: Spontaneous
  Country: US (occurrence: US)
  Receive Date: 20150803
  Receipt Date: 20150803
  Transmission Date: 20151125
  Serious: Yes (Other)
  Sender: FDA-Public Use
  Company Number: US-ELI_LILLY_AND_COMPANY-US201001004178

PATIENT
  Age: 42 Year
  Sex: Female
  Weight: 72.56 kg

DRUGS (7)
  1. STRATTERA [Suspect]
     Active Substance: ATOMOXETINE HYDROCHLORIDE
     Dosage: 118 MG, UNKNOWN
     Route: 065
  2. LAMICTAL [Concomitant]
     Active Substance: LAMOTRIGINE
  3. STRATTERA [Suspect]
     Active Substance: ATOMOXETINE HYDROCHLORIDE
     Dosage: 118 MG, UNKNOWN
     Route: 065
  4. STRATTERA [Suspect]
     Active Substance: ATOMOXETINE HYDROCHLORIDE
     Dosage: 143 MG, UNKNOWN
     Route: 065
  5. STRATTERA [Suspect]
     Active Substance: ATOMOXETINE HYDROCHLORIDE
     Indication: ATTENTION DEFICIT/HYPERACTIVITY DISORDER
     Dosage: 100 MG, UNKNOWN
     Route: 048
  6. EFFEXOR [Concomitant]
     Active Substance: VENLAFAXINE HYDROCHLORIDE
     Dosage: 325 MG, UNK
  7. CLONAZEPAM. [Concomitant]
     Active Substance: CLONAZEPAM
     Dosage: 1 MG, EACH EVENING

REACTIONS (5)
  - Overdose [Recovered/Resolved]
  - Hallucination [Recovered/Resolved]
  - Feeling abnormal [Recovered/Resolved]
  - Drug abuse [Recovered/Resolved]
  - Psychomotor hyperactivity [Recovered/Resolved]
